FAERS Safety Report 5324418-8 (Version None)
Quarter: 2007Q2

REPORT INFORMATION
  Report Type: 
  Country: None (occurrence: None)
  Receive Date: 20070514
  Receipt Date: 20070510
  Transmission Date: 20071010
  Serious: Yes (Hospitalization)
  Sender: FDA-Public Use
  Company Number: FR-MERCK-0705FRA00019

PATIENT
  Age: 85 Year
  Sex: Female
  Weight: 98 kg

DRUGS (15)
  1. HYZAAR [Suspect]
     Indication: HYPERTENSION
     Route: 048
  2. ACETAMINOPHEN AND CODEINE PHOSPHATE [Suspect]
     Route: 048
     Dates: start: 20070126, end: 20070201
  3. URAPIDIL [Suspect]
     Indication: HYPERTENSION
     Route: 048
  4. LORAZEPAM [Suspect]
     Route: 048
     Dates: end: 20070201
  5. OMEPRAZOLE [Suspect]
     Route: 048
  6. GABAPENTIN [Suspect]
     Route: 048
  7. MOXONIDINE [Suspect]
     Indication: HYPERTENSION
     Route: 048
     Dates: end: 20070201
  8. MIRTAZAPINE [Suspect]
     Indication: DEPRESSION
     Route: 048
     Dates: end: 20070201
  9. NAFRONYL OXALATE [Suspect]
     Route: 048
     Dates: end: 20070201
  10. NICARDIPINE HYDROCHLORIDE [Suspect]
     Indication: HYPERTENSION
     Route: 048
     Dates: end: 20070201
  11. ASPIRIN LYSINE [Concomitant]
     Route: 048
  12. REPAGLINIDE [Concomitant]
     Indication: DIABETES MELLITUS
     Route: 048
  13. INSULIN HUMAN [Concomitant]
     Indication: DIABETES MELLITUS
     Route: 058
  14. INSULIN LISPRO [Concomitant]
     Indication: DIABETES MELLITUS
     Route: 058
  15. ACETAMINOPHEN [Concomitant]
     Route: 048

REACTIONS (2)
  - CONFUSIONAL STATE [None]
  - FALL [None]
